FAERS Safety Report 9361424 (Version 1)
Quarter: 2013Q2

REPORT INFORMATION
  Report Type: Spontaneous
  Country: FR (occurrence: FR)
  Receive Date: 20130621
  Receipt Date: 20130621
  Transmission Date: 20140414
  Serious: Yes (Hospitalization)
  Sender: FDA-Public Use
  Company Number: FR-TEVA-413836ISR

PATIENT
  Age: 87 Year
  Sex: Male

DRUGS (11)
  1. FUROSEMIDE TEVA 40 MG [Suspect]
     Dosage: 20 MILLIGRAM DAILY;
     Route: 048
     Dates: start: 20130522, end: 20130525
  2. FUROSEMIDE TEVA 40 MG [Suspect]
     Dosage: 60 MILLIGRAM DAILY; 1.5 TABS PER DAY, TOTAL OF 5.5 TABS
     Route: 048
     Dates: start: 20130522, end: 20130525
  3. FUROSEMIDE TEVA 40 MG [Suspect]
     Dosage: 40 MILLIGRAM DAILY; 1 TAB PER DAY
     Route: 048
  4. TRINITRINE MYLAN [Concomitant]
  5. LOXEN [Concomitant]
  6. METOPROLOL SANDOZ [Concomitant]
  7. RAMIPRIL TEVA [Concomitant]
  8. ATORVASTATINE [Concomitant]
  9. KARDEGIC [Concomitant]
  10. AMIODARONE WIHNTHROP [Concomitant]
  11. OMEPRAZOLE TEVA [Concomitant]

REACTIONS (7)
  - Somnolence [Recovered/Resolved]
  - Confusional state [Recovered/Resolved]
  - Hypotonia [Recovered/Resolved]
  - Pulmonary oedema [Recovered/Resolved]
  - Cardiac failure [Recovered/Resolved]
  - Incoherent [Unknown]
  - Movement disorder [Unknown]
